FAERS Safety Report 13726399 (Version 1)
Quarter: 2017Q3

REPORT INFORMATION
  Report Type: Spontaneous
  Country: US (occurrence: YE)
  Receive Date: 20170707
  Receipt Date: 20170707
  Transmission Date: 20171127
  Serious: Yes (Hospitalization)
  Sender: FDA-Public Use
  Company Number: None

PATIENT
  Age: 2 Year
  Sex: Male
  Weight: 16.1 kg

DRUGS (17)
  1. LANSOPRAZOLE. [Concomitant]
     Active Substance: LANSOPRAZOLE
  2. ERYTHROMYCIN. [Concomitant]
     Active Substance: ERYTHROMYCIN
  3. FLUTICASONE-SALMETEROL (ADVAIR HFA) [Concomitant]
  4. LEVALBUTEROL. [Concomitant]
     Active Substance: LEVALBUTEROL
  5. MONTELUKAST [Concomitant]
     Active Substance: MONTELUKAST SODIUM
  6. BIFIDOBACTERIUM-LACTOBACILLUS (FLORAGEN) 1 [Concomitant]
  7. CANNABIDIOL ORAL SOLUTION (300MG/ML) [Suspect]
     Active Substance: CANNABIDIOL
     Indication: SEIZURE
     Dosage: DOSE-ROUTE-FREQUENCY - 1.1 ML PER GJ TUBE BID
     Dates: start: 20170411
  8. BRIVARACETAM [Concomitant]
     Active Substance: BRIVARACETAM
  9. ESMEPRAZOLE [Concomitant]
  10. FLUTICASONE NASAL SPRAY [Concomitant]
     Active Substance: FLUTICASONE
  11. MELATONIN [Concomitant]
     Active Substance: MELATONIN
  12. CLOBAZAM [Concomitant]
     Active Substance: CLOBAZAM
  13. DIAZEPAM RECTAL GEL (DIASTAT) [Concomitant]
  14. CLONIDINE. [Concomitant]
     Active Substance: CLONIDINE
  15. CETIRIZINE [Concomitant]
     Active Substance: CETIRIZINE HYDROCHLORIDE
  16. GLYCOPYRROLATE. [Concomitant]
     Active Substance: GLYCOPYRROLATE
  17. TRIAMCINOLONE [Concomitant]
     Active Substance: TRIAMCINOLONE

REACTIONS (6)
  - Aspiration [None]
  - Pneumonia [None]
  - Salivary hypersecretion [None]
  - Atelectasis [None]
  - Gastrostomy [None]
  - Jejunostomy [None]

NARRATIVE: CASE EVENT DATE: 20170627
